FAERS Safety Report 8321963 (Version 6)
Quarter: 2013Q2

REPORT INFORMATION
  Report Type: Spontaneous
  Country: US (occurrence: US)
  Receive Date: 20120105
  Receipt Date: 20130415
  Transmission Date: 20140414
  Serious: Yes (Hospitalization, Other)
  Sender: FDA-Public Use
  Company Number: US-BIOGENIDEC-2011BI048992

PATIENT
  Age: 57 Year
  Sex: Female

DRUGS (1)
  1. TYSABRI [Suspect]
     Indication: MULTIPLE SCLEROSIS
     Route: 042
     Dates: start: 20060803

REACTIONS (5)
  - Scoliosis [Not Recovered/Not Resolved]
  - Aneurysm [Recovered/Resolved]
  - Osteoporosis [Not Recovered/Not Resolved]
  - Muscle strain [Recovered/Resolved]
  - Spinal fracture [Recovered/Resolved]
